FAERS Safety Report 5247620-2 (Version None)
Quarter: 2007Q1

REPORT INFORMATION
  Report Type: 
  Country: None (occurrence: None)
  Receive Date: 20070216
  Receipt Date: 20070208
  Transmission Date: 20070707
  Serious: Yes (Hospitalization)
  Sender: FDA-Public Use
  Company Number: 440003K07USA

PATIENT
  Age: 34 Year
  Sex: Male

DRUGS (3)
  1. SEROSTIM [Suspect]
     Indication: CACHEXIA
     Dosage: SEE IMAGE
     Dates: start: 20040101, end: 20050101
  2. SEROSTIM [Suspect]
     Indication: CACHEXIA
     Dosage: SEE IMAGE
     Dates: start: 20070119
  3. FENTANYL [Suspect]

REACTIONS (1)
  - CONVULSION [None]
